FAERS Safety Report 20483277 (Version 1)
Quarter: 2022Q1

REPORT INFORMATION
  Report Type: Other
  Country: US (occurrence: None)
  Receive Date: 20220217
  Receipt Date: 20220217
  Transmission Date: 20220423
  Serious: Yes (Other)
  Sender: FDA-Public Use
  Company Number: US-ROCHE-3022388

PATIENT
  Sex: Female

DRUGS (1)
  1. TECENTRIQ [Suspect]
     Active Substance: ATEZOLIZUMAB
     Indication: Lung neoplasm malignant
     Route: 041

REACTIONS (13)
  - Anaemia [Unknown]
  - Constipation [Unknown]
  - Dehydration [Unknown]
  - Dry mouth [Unknown]
  - Nausea [Unknown]
  - Diarrhoea [Unknown]
  - Hypokalaemia [Unknown]
  - Fatigue [Unknown]
  - Sleep disorder [Unknown]
  - Asthenia [Unknown]
  - Decreased appetite [Unknown]
  - Liver function test abnormal [Unknown]
  - Vomiting [Unknown]
